FAERS Safety Report 6550264-3 (Version None)
Quarter: 2010Q1

REPORT INFORMATION
  Report Type: 
  Country: None (occurrence: None)
  Receive Date: 20100125
  Receipt Date: 20100115
  Transmission Date: 20100710
  Serious: Yes (Hospitalization, Other)
  Sender: FDA-Public Use
  Company Number: JP-PFIZER INC-2010007260

PATIENT
  Age: 87 Year
  Sex: Female

DRUGS (1)
  1. CARDENALIN [Suspect]

REACTIONS (1)
  - PNEUMONIA [None]
